FAERS Safety Report 20959458 (Version 1)
Quarter: 2022Q2

REPORT INFORMATION
  Report Type: Report from Study
  Country: US (occurrence: US)
  Receive Date: 20220614
  Receipt Date: 20220614
  Transmission Date: 20220721
  Serious: Yes (Hospitalization, Other)
  Sender: FDA-Public Use
  Company Number: US-BAUSCH-BL-2022-014839

PATIENT
  Age: 68 Year
  Sex: Female

DRUGS (4)
  1. WELLBUTRIN XL [Interacting]
     Active Substance: BUPROPION HYDROCHLORIDE
     Indication: Product used for unknown indication
     Route: 065
  2. WELLBUTRIN XL [Interacting]
     Active Substance: BUPROPION HYDROCHLORIDE
     Route: 065
  3. NIRAPARIB [Interacting]
     Active Substance: NIRAPARIB
     Indication: Ovarian cancer
     Route: 065
     Dates: start: 202007
  4. NIRAPARIB [Interacting]
     Active Substance: NIRAPARIB
     Route: 065
     Dates: start: 202006

REACTIONS (10)
  - Precancerous cells present [Unknown]
  - Drug interaction [Unknown]
  - Suicidal ideation [Unknown]
  - Anxiety [Unknown]
  - Hypertension [Recovering/Resolving]
  - Depression [Unknown]
  - Fatigue [Unknown]
  - Arthralgia [Unknown]
  - Platelet count decreased [Unknown]
  - Product dose omission issue [Unknown]
